FAERS Safety Report 11809904 (Version 2)
Quarter: 2016Q1

REPORT INFORMATION
  Report Type: Spontaneous
  Country: BR (occurrence: BR)
  Receive Date: 20151208
  Receipt Date: 20160224
  Transmission Date: 20160525
  Serious: Yes (Hospitalization, Other)
  Sender: FDA-Public Use
  Company Number: BR-ABBVIE-15K-020-1503140-00

PATIENT
  Age: 81 Year
  Sex: Female

DRUGS (1)
  1. HUMIRA [Suspect]
     Active Substance: ADALIMUMAB
     Indication: DERMATITIS PSORIASIFORM
     Route: 058

REACTIONS (4)
  - Myelofibrosis [Unknown]
  - Platelet count decreased [Unknown]
  - Anaemia [Unknown]
  - Dermatitis psoriasiform [Unknown]
